FAERS Safety Report 9575774 (Version 2)
Quarter: 2013Q4

REPORT INFORMATION
  Report Type: Spontaneous
  Country: US (occurrence: US)
  Receive Date: 20131001
  Receipt Date: 20131001
  Transmission Date: 20140711
  Serious: No
  Sender: FDA-Public Use
  Company Number: US-AMGEN-USASP2012036815

PATIENT
  Age: 62 Year
  Sex: Female
  Weight: 132 kg

DRUGS (1)
  1. PROCRIT [Suspect]
     Indication: ANAEMIA
     Dosage: 10000 IU, QWK
     Route: 058
     Dates: start: 2010

REACTIONS (2)
  - Drug administration error [Recovered/Resolved]
  - Haemoglobin decreased [Unknown]
